FAERS Safety Report 24779840 (Version 1)
Quarter: 2024Q4

REPORT INFORMATION
  Report Type: Report from Study
  Country: US (occurrence: US)
  Receive Date: 20241226
  Receipt Date: 20241226
  Transmission Date: 20250115
  Serious: Yes (Other)
  Sender: ABBVIE
  Company Number: US-ABBVIE-6057835

PATIENT
  Age: 53 Year
  Sex: Male

DRUGS (2)
  1. HUMIRA [Suspect]
     Active Substance: ADALIMUMAB
     Indication: Rheumatoid arthritis
     Route: 058
     Dates: start: 2010
  2. PREDNISONE [Concomitant]
     Active Substance: PREDNISONE
     Indication: Product used for unknown indication

REACTIONS (8)
  - Chronic kidney disease [Unknown]
  - Pain [Unknown]
  - Fall [Unknown]
  - Syncope [Unknown]
  - Head injury [Unknown]
  - Face injury [Unknown]
  - Swelling [Unknown]
  - Accident [Unknown]

NARRATIVE: CASE EVENT DATE: 20140101
